FAERS Safety Report 6168880-X (Version None)
Quarter: 2009Q2

REPORT INFORMATION
  Report Type: 
  Country: None (occurrence: None)
  Receive Date: 20090424
  Receipt Date: 20090424
  Transmission Date: 20091009
  Serious: Yes (Life-Threatening, Other)
  Sender: FDA-Public Use
  Company Number: None

PATIENT
  Age: 68 Year
  Sex: Female
  Weight: 74.8435 kg

DRUGS (1)
  1. TAXOL [Suspect]
     Indication: BREAST CANCER
     Dosage: 142 EVERY 3 WEEKS IV DRIP
     Route: 041
     Dates: start: 20090326, end: 20090422

REACTIONS (2)
  - PULSE ABSENT [None]
  - RESPIRATORY ARREST [None]
